FAERS Safety Report 12766927 (Version 1)
Quarter: 2016Q3

REPORT INFORMATION
  Report Type: Spontaneous
  Country: US (occurrence: US)
  Receive Date: 20160921
  Receipt Date: 20160921
  Transmission Date: 20161109
  Serious: Yes (Life-Threatening, Hospitalization)
  Sender: FDA-Public Use
  Company Number: US-G+W LABS-GW2016US000125

PATIENT

DRUGS (1)
  1. ACETAMINOPHEN. [Suspect]
     Active Substance: ACETAMINOPHEN
     Indication: PRODUCT USED FOR UNKNOWN INDICATION

REACTIONS (1)
  - Metabolic acidosis [Unknown]
